FAERS Safety Report 10274436 (Version 1)
Quarter: 2014Q3

REPORT INFORMATION
  Report Type: Spontaneous
  Country: GB (occurrence: GB)
  Receive Date: 20140702
  Receipt Date: 20140702
  Transmission Date: 20150326
  Serious: Yes (Other)
  Sender: FDA-Public Use
  Company Number: GB-ASTRAZENECA-2014SE46298

PATIENT
  Age: 58 Year
  Sex: Male

DRUGS (6)
  1. TICAGRELOR [Suspect]
     Active Substance: TICAGRELOR
     Indication: MYOCARDIAL ISCHAEMIA
     Route: 048
  2. ASPIRIN. [Concomitant]
     Active Substance: ASPIRIN
  3. SIMVASTATIN. [Concomitant]
     Active Substance: SIMVASTATIN
  4. LANSOPRAZOL [Concomitant]
     Active Substance: LANSOPRAZOLE
  5. GLYCERYL TRINITRATE [Concomitant]
     Active Substance: NITROGLYCERIN
  6. RAMIPRIL. [Concomitant]
     Active Substance: RAMIPRIL

REACTIONS (4)
  - Angina pectoris [Unknown]
  - Dyspnoea [Unknown]
  - Dizziness [Unknown]
  - Anaemia [Not Recovered/Not Resolved]

NARRATIVE: CASE EVENT DATE: 20140613
